FAERS Safety Report 6233053-9 (Version None)
Quarter: 2009Q2

REPORT INFORMATION
  Report Type: 
  Country: None (occurrence: None)
  Receive Date: 20090617
  Receipt Date: 20090603
  Transmission Date: 20091009
  Serious: Yes (Hospitalization)
  Sender: FDA-Public Use
  Company Number: US-ALEXION-A200900448

PATIENT
  Sex: Female

DRUGS (5)
  1. SOLIRIS [Suspect]
     Indication: PAROXYSMAL NOCTURNAL HAEMOGLOBINURIA
     Dosage: 600 MG, QW
     Route: 042
     Dates: start: 20081105
  2. SOLIRIS [Suspect]
     Dosage: 900 MG, Q2W
     Route: 042
     Dates: start: 20081203, end: 20090101
  3. ATG                                /00575401/ [Suspect]
     Dosage: UNK
     Dates: start: 20090512, end: 20090515
  4. CYCLOSPORINE [Concomitant]
     Dosage: UNK
     Route: 048
  5. PREDNISONE [Concomitant]
     Dosage: UNK
     Route: 048

REACTIONS (6)
  - BACK PAIN [None]
  - BLOOD LACTATE DEHYDROGENASE INCREASED [None]
  - CHEST PAIN [None]
  - JAUNDICE [None]
  - RASH [None]
  - URTICARIA [None]
